FAERS Safety Report 10363222 (Version 8)
Quarter: 2018Q4

REPORT INFORMATION
  Report Type: Report from Study
  Country: US (occurrence: US)
  Receive Date: 20140805
  Receipt Date: 20181001
  Transmission Date: 20190204
  Serious: Yes (Hospitalization, Disabling, Other)
  Sender: FDA-Public Use
  Company Number: US-SANOFI-AVENTIS-2013SA081336

PATIENT
  Age: 65 Year
  Sex: Male

DRUGS (1)
  1. TERIFLUNOMIDE. [Suspect]
     Active Substance: TERIFLUNOMIDE
     Indication: MULTIPLE SCLEROSIS
     Dosage: 14 MG,QD
     Route: 048
     Dates: start: 20130729

REACTIONS (20)
  - Pain in extremity [Unknown]
  - Hypersensitivity [Unknown]
  - Diarrhoea [Not Recovered/Not Resolved]
  - Neoplasm [Unknown]
  - Poor peripheral circulation [Not Recovered/Not Resolved]
  - Weight decreased [Not Recovered/Not Resolved]
  - Thrombosis [Unknown]
  - Renal failure [Recovering/Resolving]
  - Malaise [Recovered/Resolved]
  - Gangrene [Recovered/Resolved]
  - Leg amputation [Unknown]
  - Rhinorrhoea [Unknown]
  - Arthritis [Unknown]
  - Infection [Recovered/Resolved]
  - Myocardial infarction [Recovered/Resolved]
  - Limb prosthesis user [Unknown]
  - Seasonal allergy [Unknown]
  - Alopecia [Recovered/Resolved]
  - Speech disorder [Unknown]
  - Unevaluable event [Unknown]

NARRATIVE: CASE EVENT DATE: 201510
